FAERS Safety Report 20193476 (Version 1)
Quarter: 2021Q4

REPORT INFORMATION
  Report Type: Spontaneous
  Country: US (occurrence: US)
  Receive Date: 20211216
  Receipt Date: 20211216
  Transmission Date: 20220303
  Serious: No
  Sender: FDA-Public Use
  Company Number: US-CURRAX PHARMACEUTICALS LLC-US-2021CUR000001

PATIENT
  Sex: Female

DRUGS (1)
  1. ZOHYDRO [Suspect]
     Active Substance: HYDROCODONE BITARTRATE
     Indication: Product used for unknown indication
     Dosage: 15 MG, UNK
     Route: 048

REACTIONS (3)
  - Frustration tolerance decreased [Unknown]
  - Product dose omission issue [Unknown]
  - Drug dependence [Unknown]
